FAERS Safety Report 5234559-1 (Version None)
Quarter: 2007Q1

REPORT INFORMATION
  Report Type: 
  Country: None (occurrence: None)
  Receive Date: 20070209
  Receipt Date: 20070131
  Transmission Date: 20070707
  Serious: Yes (Hospitalization)
  Sender: FDA-Public Use
  Company Number: US-SANOFI-SYNTHELABO-A03200700874

PATIENT
  Age: 30 Year
  Sex: Female

DRUGS (1)
  1. AMBIEN [Suspect]
     Indication: INSOMNIA
     Dosage: 10 -15 ZOLPIDEM TABLETS/NIGHT
     Route: 048

REACTIONS (9)
  - AFFECT LABILITY [None]
  - DEPENDENCE [None]
  - DEPRESSION [None]
  - DRUG ABUSER [None]
  - DRUG EXPOSURE DURING PREGNANCY [None]
  - DRUG WITHDRAWAL SYNDROME [None]
  - HEADACHE [None]
  - INSOMNIA [None]
  - PREMATURE SEPARATION OF PLACENTA [None]
